FAERS Safety Report 7498300-4 (Version None)
Quarter: 2011Q2

REPORT INFORMATION
  Report Type: 
  Country: None (occurrence: None)
  Receive Date: 20110524
  Receipt Date: 20110425
  Transmission Date: 20111010
  Serious: Yes (Hospitalization, Other)
  Sender: FDA-Public Use
  Company Number: US-BAYER-2010-002475

PATIENT
  Age: 26 Year
  Sex: Female
  Weight: 68.027 kg

DRUGS (20)
  1. YAZ [Suspect]
     Indication: CONTRACEPTION
     Dosage: UNK
     Dates: start: 20070101, end: 20090101
  2. IBUPROFEN [Concomitant]
  3. ACIPHEX [Concomitant]
     Indication: GASTROOESOPHAGEAL REFLUX DISEASE
     Dosage: UNK
     Dates: start: 20080101, end: 20090101
  4. CELEBREX [Concomitant]
  5. FIORICET W/ CODEINE [Concomitant]
     Indication: MIGRAINE
     Dosage: UNK
     Dates: start: 20070101
  6. PROTONIX [Concomitant]
     Dosage: UNK UNK, BID
     Dates: start: 20080101
  7. LAMICTAL [Concomitant]
     Dosage: UNK
     Dates: start: 20070101
  8. FLOVENT [Concomitant]
     Indication: ASTHMA
     Dosage: UNK
     Dates: start: 19950101, end: 20101201
  9. FLOVENT [Concomitant]
     Dosage: UNK
     Dates: start: 20000101
  10. AZULFIDINE [Concomitant]
     Indication: ARTHRITIS
     Dosage: UNK
     Dates: start: 20010101, end: 20080101
  11. ZITHROMAX [Concomitant]
     Dosage: UNK
     Dates: start: 19830101
  12. DEPAKOTE [Concomitant]
     Dosage: UNK
     Dates: start: 20070101
  13. ASCORBIC ACID [Concomitant]
     Dosage: UNK
     Dates: start: 20000101
  14. ALLEGRA [Concomitant]
     Indication: MULTIPLE ALLERGIES
     Dosage: UNK
     Dates: start: 19950101
  15. PREVACID [Concomitant]
     Indication: GASTROOESOPHAGEAL REFLUX DISEASE
  16. ADVAIR DISKUS 100/50 [Concomitant]
     Indication: ASTHMA
  17. NAPROSYN [Concomitant]
  18. MOBIC [Concomitant]
  19. SINGULAIR [Concomitant]
     Indication: ASTHMA
     Dosage: UNK
     Dates: start: 20040101
  20. ASPIRIN [Concomitant]

REACTIONS (10)
  - ANXIETY [None]
  - CONVULSION [None]
  - GALLBLADDER NON-FUNCTIONING [None]
  - NAUSEA [None]
  - MENTAL DISORDER [None]
  - ABDOMINAL PAIN [None]
  - VOMITING [None]
  - DIARRHOEA [None]
  - DEPRESSION [None]
  - BILIARY DYSKINESIA [None]
